FAERS Safety Report 5127435-6 (Version None)
Quarter: 2006Q4

REPORT INFORMATION
  Report Type: 
  Country: None (occurrence: None)
  Receive Date: 20061013
  Receipt Date: 20061013
  Transmission Date: 20070319
  Serious: Yes (Death, Hospitalization)
  Sender: FDA-Public Use
  Company Number: None

PATIENT
  Sex: Female
  Weight: 60 kg

DRUGS (3)
  1. CISPLATIN [Suspect]
     Dosage: 80 MG
  2. DOXORUBICIN HYDROCHLORIDE [Suspect]
     Dosage: 70 MG
  3. TAXOL [Suspect]
     Dosage: 255 MG

REACTIONS (11)
  - ACUTE RESPIRATORY FAILURE [None]
  - ASTHENIA [None]
  - BONE MARROW FAILURE [None]
  - CARDIAC FAILURE CONGESTIVE [None]
  - DIARRHOEA [None]
  - HYPOTENSION [None]
  - PLEURAL EFFUSION [None]
  - PULMONARY OEDEMA [None]
  - SEPTIC SHOCK [None]
  - STAPHYLOCOCCAL INFECTION [None]
  - WHITE BLOOD CELL COUNT DECREASED [None]
